FAERS Safety Report 16149846 (Version 1)
Quarter: 2019Q2

REPORT INFORMATION
  Report Type: Spontaneous
  Country: FR (occurrence: FR)
  Receive Date: 20190403
  Receipt Date: 20190403
  Transmission Date: 20190711
  Serious: Yes (Death)
  Sender: FDA-Public Use
  Company Number: FR-ACCORD-117371

PATIENT
  Age: 65 Year
  Sex: Female
  Weight: 85 kg

DRUGS (11)
  1. GLYCEROL/PARAFFIN/LIQUID/WHITE SOFT PARAFFIN [Concomitant]
     Dosage: TUBE CREAM
  2. DOLIPRANE [Concomitant]
     Active Substance: ACETAMINOPHEN
  3. PREDNISONE. [Suspect]
     Active Substance: PREDNISONE
     Indication: SYSTEMIC SCLERODERMA
     Route: 048
     Dates: start: 2012
  4. ROACTEMRA [Suspect]
     Active Substance: TOCILIZUMAB
     Indication: SYSTEMIC SCLERODERMA
     Route: 042
     Dates: start: 20180907, end: 20181004
  5. POTASSIUM [Concomitant]
     Active Substance: POTASSIUM
  6. LASILIX [Concomitant]
     Active Substance: FUROSEMIDE
  7. METHOTREXATE. [Suspect]
     Active Substance: METHOTREXATE
     Indication: SYSTEMIC SCLERODERMA
     Route: 058
     Dates: start: 2012
  8. ATARAX [Concomitant]
     Active Substance: HYDROXYZINE HYDROCHLORIDE
  9. PANTOPRAZOLE [Concomitant]
     Active Substance: PANTOPRAZOLE
  10. LOXEN [Concomitant]
  11. KARDEGIC [Concomitant]
     Active Substance: ASPIRIN DL-LYSINE

REACTIONS (2)
  - Candida sepsis [Fatal]
  - Septic shock [Fatal]

NARRATIVE: CASE EVENT DATE: 201811
